FAERS Safety Report 10176412 (Version 1)
Quarter: 2014Q2

REPORT INFORMATION
  Report Type: Spontaneous
  Country: GB (occurrence: GB)
  Receive Date: 20140516
  Receipt Date: 20140516
  Transmission Date: 20141212
  Serious: Yes (Hospitalization)
  Sender: FDA-Public Use
  Company Number: PHHY2014GB057115

PATIENT
  Age: 90 Year
  Sex: Male

DRUGS (8)
  1. FUROSEMIDE [Suspect]
     Indication: OEDEMA
     Dosage: 40 MG QD
     Route: 048
  2. LISINOPRIL [Suspect]
     Indication: HYPERTENSION
     Dosage: 20 MG QD
     Route: 048
     Dates: end: 20140303
  3. GAVISCON [Suspect]
     Indication: DYSPEPSIA
     Route: 048
     Dates: end: 20140303
  4. ALLOPURINOL [Concomitant]
     Indication: GOUT
     Dosage: 300 UG QD
  5. DIGOXIN [Concomitant]
     Indication: ATRIAL FIBRILLATION
     Dosage: 125 UG QD
  6. PARACETAMOL [Concomitant]
     Indication: PAIN
     Dosage: 1 G, QID
  7. SALBUTAMOL [Concomitant]
     Indication: WHEEZING
     Dosage: 100 UG, UNK
     Route: 055
  8. WARFARIN [Concomitant]
     Indication: ATRIAL FIBRILLATION

REACTIONS (1)
  - Renal failure acute [Recovered/Resolved]
